FAERS Safety Report 6993723-1 (Version None)
Quarter: 2010Q3

REPORT INFORMATION
  Report Type: 
  Country: None (occurrence: None)
  Receive Date: 20100917
  Receipt Date: 20100908
  Transmission Date: 20110219
  Serious: Yes (Death, Other)
  Sender: FDA-Public Use
  Company Number: US-AMGEN-QUU436491

PATIENT
  Sex: Male

DRUGS (5)
  1. NPLATE [Suspect]
     Indication: IDIOPATHIC THROMBOCYTOPENIC PURPURA
     Dates: start: 20100305, end: 20100428
  2. CORTICOSTEROIDS [Concomitant]
     Dates: start: 20100210
  3. IMMU-G [Concomitant]
     Dates: start: 20070627
  4. RITUXIMAB [Concomitant]
     Dates: start: 20060804
  5. CYCLOPHOSPHAMIDE [Concomitant]
     Dates: start: 20091023

REACTIONS (2)
  - DRUG INEFFECTIVE [None]
  - SPLENIC RUPTURE [None]
